FAERS Safety Report 15268058 (Version 1)
Quarter: 2018Q3

REPORT INFORMATION
  Report Type: Spontaneous
  Country: BR (occurrence: BR)
  Receive Date: 20180812
  Receipt Date: 20180812
  Transmission Date: 20181010
  Serious: Yes (Hospitalization, Other)
  Sender: FDA-Public Use
  Company Number: BR-ROCHE-2154471

PATIENT
  Age: 84 Year
  Sex: Male

DRUGS (1)
  1. RIVOTRIL [Suspect]
     Active Substance: CLONAZEPAM
     Indication: PRODUCT USED FOR UNKNOWN INDICATION
     Dosage: AT 10 PM
     Route: 065

REACTIONS (5)
  - Insomnia [Unknown]
  - Cerebrovascular accident [Recovering/Resolving]
  - Diabetes mellitus [Unknown]
  - Terminal insomnia [Unknown]
  - Alcohol interaction [Unknown]
